FAERS Safety Report 5910664-9 (Version None)
Quarter: 2008Q4

REPORT INFORMATION
  Report Type: 
  Country: None (occurrence: None)
  Receive Date: 20081007
  Receipt Date: 20080926
  Transmission Date: 20090506
  Serious: Yes (Hospitalization)
  Sender: FDA-Public Use
  Company Number: US-ROCHE-588283

PATIENT
  Sex: Female
  Weight: 98.4 kg

DRUGS (2)
  1. CAPECITABINE [Suspect]
     Indication: BREAST CANCER
     Route: 065
     Dates: start: 20080822, end: 20080905
  2. TYKERB [Concomitant]

REACTIONS (2)
  - DIARRHOEA [None]
  - RECTAL ABSCESS [None]
